FAERS Safety Report 20525534 (Version 2)
Quarter: 2022Q2

REPORT INFORMATION
  Report Type: Report from Study
  Country: FR (occurrence: FR)
  Receive Date: 20220228
  Receipt Date: 20220506
  Transmission Date: 20220720
  Serious: Yes (Life-Threatening, Hospitalization)
  Sender: FDA-Public Use
  Company Number: FR-NOVARTISPH-NVSC2022FR045989

PATIENT
  Age: 23 Year
  Sex: Female
  Weight: 54 kg

DRUGS (3)
  1. CYTARABINE [Suspect]
     Active Substance: CYTARABINE
     Indication: Acute lymphocytic leukaemia
     Dosage: 6200 MG
     Route: 042
     Dates: start: 20220209, end: 20220210
  2. GRANULOCYTE COLONY-STIMULATING FACTOR NOS [Suspect]
     Active Substance: GRANULOCYTE COLONY-STIMULATING FACTOR NOS
     Indication: Acute lymphocytic leukaemia
     Dosage: 30 MUI, D3 TO D14
     Route: 058
     Dates: start: 20220211, end: 20220222
  3. NELARABINE [Suspect]
     Active Substance: NELARABINE
     Indication: Acute lymphocytic leukaemia
     Dosage: 2280 MG
     Route: 042
     Dates: start: 20220119, end: 20220123

REACTIONS (1)
  - Febrile neutropenia [Recovered/Resolved with Sequelae]

NARRATIVE: CASE EVENT DATE: 20220218
